FAERS Safety Report 5832347-6 (Version None)
Quarter: 2008Q3

REPORT INFORMATION
  Report Type: 
  Country: None (occurrence: None)
  Receive Date: 20080804
  Receipt Date: 20080731
  Transmission Date: 20090109
  Serious: Yes (Hospitalization)
  Sender: FDA-Public Use
  Company Number: B0531632A

PATIENT
  Age: 38 Year
  Sex: Male

DRUGS (3)
  1. FLOLAN [Suspect]
     Indication: PULMONARY HYPERTENSION
     Route: 042
     Dates: start: 20051004
  2. ALLOPURINOL [Concomitant]
     Indication: HYPERURICAEMIA
     Dosage: 300MG PER DAY
     Route: 048
     Dates: start: 19990907
  3. DIGOSIN [Concomitant]
     Indication: CARDIAC FAILURE
     Dosage: .25MG PER DAY
     Route: 048

REACTIONS (3)
  - DIZZINESS [None]
  - HAEMOPTYSIS [None]
  - VERTIGO [None]
